FAERS Safety Report 8333668-8 (Version None)
Quarter: 2012Q2

REPORT INFORMATION
  Report Type: 
  Country: None (occurrence: None)
  Receive Date: 20120503
  Receipt Date: 20120427
  Transmission Date: 20120825
  Serious: Yes (Hospitalization, Other)
  Sender: FDA-Public Use
  Company Number: PHHY2012ES036344

PATIENT
  Age: 81 Year
  Sex: Male

DRUGS (6)
  1. BISOPROLOL FUMARATE [Concomitant]
     Dosage: UNK
  2. VOLTAREN [Interacting]
     Indication: PAIN
     Dosage: UNK
     Route: 048
     Dates: start: 20110609
  3. OMEPRAZOLE [Suspect]
     Indication: GASTRITIS PROPHYLAXIS
     Dosage: 20 MG DAILY
     Route: 048
  4. FUROSEMIDE [Concomitant]
     Dosage: UNK
  5. WARFARIN SODIUM [Interacting]
     Dosage: UNK
     Route: 048
     Dates: start: 20110508, end: 20110611
  6. CANDESARTAN CILEXETIL [Concomitant]
     Dosage: UNK

REACTIONS (9)
  - INTERNATIONAL NORMALISED RATIO INCREASED [None]
  - ERYTHEMA [None]
  - DIVERTICULITIS [None]
  - SKIN PLAQUE [None]
  - RECTAL HAEMORRHAGE [None]
  - ATRIAL FIBRILLATION [None]
  - DRUG INTERACTION [None]
  - COLONIC POLYP [None]
  - HEART RATE DECREASED [None]
